FAERS Safety Report 19446781 (Version 1)
Quarter: 2021Q2

REPORT INFORMATION
  Report Type: Spontaneous
  Country: US (occurrence: US)
  Receive Date: 20210620
  Receipt Date: 20210620
  Transmission Date: 20210717
  Serious: Yes (Other)
  Sender: FDA-Public Use
  Company Number: None

PATIENT
  Age: 70 Year
  Sex: Female
  Weight: 47.25 kg

DRUGS (8)
  1. SUCRALFATE 1 GRAM TABS [Suspect]
     Active Substance: SUCRALFATE
     Indication: GASTRITIS
     Dosage: ?          QUANTITY:1 TABLET(S);?
  2. LISINOPRIL. [Concomitant]
     Active Substance: LISINOPRIL
  3. ALLERGY INHALERS [Concomitant]
  4. SUCRALFATE 1 GRAM TABS [Suspect]
     Active Substance: SUCRALFATE
     Indication: GASTROOESOPHAGEAL REFLUX DISEASE
     Dosage: ?          QUANTITY:1 TABLET(S);?
  5. MULTIVITAMINS [Concomitant]
     Active Substance: VITAMINS
  6. MIRALAX [Concomitant]
     Active Substance: POLYETHYLENE GLYCOL 3350
  7. DEXILANT [Concomitant]
     Active Substance: DEXLANSOPRAZOLE
  8. PEPCID AC [Concomitant]
     Active Substance: FAMOTIDINE

REACTIONS (6)
  - Gastrooesophageal reflux disease [None]
  - Therapeutic product effect decreased [None]
  - Gastritis [None]
  - Product use complaint [None]
  - Product substitution issue [None]
  - Product solubility abnormal [None]

NARRATIVE: CASE EVENT DATE: 20210615
